FAERS Safety Report 10308965 (Version 2)
Quarter: 2014Q3

REPORT INFORMATION
  Report Type: Spontaneous
  Country: US (occurrence: None)
  Receive Date: 20140714
  Receipt Date: 20140815
  Transmission Date: 20150326
  Serious: Yes (Death)
  Sender: FDA-Public Use
  Company Number: UNT-2014-003482

PATIENT
  Age: 77 Year
  Sex: Male
  Weight: 65.3 kg

DRUGS (3)
  1. WARFARIN (WARFARIN) [Concomitant]
     Active Substance: WARFARIN
  2. REMODULIN [Suspect]
     Active Substance: TREPROSTINIL
     Indication: PULMONARY ARTERIAL HYPERTENSION
     Route: 041
     Dates: start: 20130502
  3. REVATIO (SILDENAFIL CITRATE) [Concomitant]

REACTIONS (2)
  - Cerebrovascular accident [None]
  - Death [None]

NARRATIVE: CASE EVENT DATE: 20140628
